FAERS Safety Report 6279088-1 (Version None)
Quarter: 2009Q3

REPORT INFORMATION
  Report Type: 
  Country: None (occurrence: None)
  Receive Date: 20090723
  Receipt Date: 20080617
  Transmission Date: 20100115
  Serious: No
  Sender: FDA-Public Use
  Company Number: US-AMGEN-KDL288138

PATIENT
  Sex: Male
  Weight: 77.2 kg

DRUGS (3)
  1. PROCRIT [Suspect]
     Indication: PRE-EXISTING DISEASE
     Dates: start: 20080501
  2. PEG-INTRON [Concomitant]
     Dates: start: 20080315
  3. RIBAVIRIN [Concomitant]
     Route: 048
     Dates: start: 20080315

REACTIONS (4)
  - ANAEMIA [None]
  - MUSCULAR WEAKNESS [None]
  - PYREXIA [None]
  - WEIGHT DECREASED [None]
